FAERS Safety Report 5476358-1 (Version None)
Quarter: 2007Q4

REPORT INFORMATION
  Report Type: 
  Country: None (occurrence: None)
  Receive Date: 20071003
  Receipt Date: 20070921
  Transmission Date: 20080405
  Serious: Yes (Other)
  Sender: FDA-Public Use
  Company Number: GB-PFIZER INC-2007070970

PATIENT
  Sex: Female
  Weight: 80 kg

DRUGS (13)
  1. CHAMPIX [Suspect]
     Indication: SMOKING CESSATION THERAPY
     Route: 048
     Dates: start: 20070727, end: 20070813
  2. SALBUTAMOL [Concomitant]
     Route: 055
  3. ESOMEPRAZOLE MAGNESIUM [Concomitant]
     Route: 048
  4. RANITIDINE [Concomitant]
     Route: 048
  5. AMITRIPTYLINE HYDROCHLORIDE [Concomitant]
     Route: 048
  6. MOVICOL [Concomitant]
     Route: 048
  7. PREGABALIN [Concomitant]
     Route: 048
  8. PARACETAMOL [Concomitant]
     Route: 048
  9. MORPHINE SULFATE [Concomitant]
     Route: 048
  10. MORPHINE SULFATE [Concomitant]
     Route: 048
  11. ORAMORPH SR [Concomitant]
     Dosage: TEXT:10MG/5ML ONE 5ML TEASPOONS
     Route: 048
  12. BECLOMETHASONE DIPROPIONATE [Concomitant]
     Route: 048
  13. SENNA [Concomitant]
     Route: 048

REACTIONS (7)
  - ABDOMINAL DISTENSION [None]
  - ABNORMAL DREAMS [None]
  - ARTHRALGIA [None]
  - DEPRESSION [None]
  - DYSPEPSIA [None]
  - NAUSEA [None]
  - POOR QUALITY SLEEP [None]
